FAERS Safety Report 8085319-8 (Version None)
Quarter: 2012Q1

REPORT INFORMATION
  Report Type: 
  Country: None (occurrence: None)
  Receive Date: 20120128
  Receipt Date: 20110613
  Transmission Date: 20120608
  Serious: No
  Sender: FDA-Public Use
  Company Number: US-ABBOTT-08P-163-0454303-00

PATIENT
  Sex: Male
  Weight: 78.542 kg

DRUGS (4)
  1. HUMIRA [Suspect]
     Indication: PSORIATIC ARTHROPATHY
     Dates: start: 20080509
  2. HUMIRA [Suspect]
  3. ATENOLOL [Concomitant]
     Indication: HYPERTENSION
     Dosage: 25 MG DAILY
  4. NSAIDS IN NAPROSYN FAMILY, PATIENT CANNOT THINK OF THE NAMES [Concomitant]
     Indication: PAIN
     Dosage: PRN

REACTIONS (5)
  - PARAESTHESIA [None]
  - HEADACHE [None]
  - ABNORMAL SENSATION IN EYE [None]
  - MIGRAINE [None]
  - PAIN [None]
